FAERS Safety Report 18089160 (Version 2)
Quarter: 2020Q3

REPORT INFORMATION
  Report Type: Report from Study
  Country: None (occurrence: AU)
  Receive Date: 20200730
  Receipt Date: 20200731
  Transmission Date: 20201103
  Serious: Yes (Hospitalization)
  Sender: FDA-Public Use
  Company Number: AU-ABBVIE-20K-008-3254738-00

PATIENT
  Sex: Male

DRUGS (2)
  1. IBRUTINIB [Suspect]
     Active Substance: IBRUTINIB
     Indication: CHRONIC LYMPHOCYTIC LEUKAEMIA
     Route: 048
     Dates: start: 20190601
  2. WARFARIN [Concomitant]
     Active Substance: WARFARIN
     Indication: PRODUCT USED FOR UNKNOWN INDICATION
     Route: 065

REACTIONS (15)
  - Impaired healing [Unknown]
  - Skin disorder [Not Recovered/Not Resolved]
  - Skin disorder [Recovered/Resolved]
  - Weight increased [Unknown]
  - Back pain [Unknown]
  - Peripheral swelling [Not Recovered/Not Resolved]
  - Cellulitis [Recovered/Resolved]
  - Ingrowing nail [Recovered/Resolved]
  - Emotional disorder [Recovered/Resolved]
  - Fatigue [Not Recovered/Not Resolved]
  - Myalgia [Not Recovered/Not Resolved]
  - Contusion [Unknown]
  - Vision blurred [Unknown]
  - Gait inability [Recovered/Resolved]
  - Rash [Not Recovered/Not Resolved]
